FAERS Safety Report 11723431 (Version 2)
Quarter: 2015Q4

REPORT INFORMATION
  Report Type: Spontaneous
  Country: US (occurrence: US)
  Receive Date: 20151111
  Receipt Date: 20151125
  Transmission Date: 20160304
  Serious: Yes (Death, Hospitalization, Disabling, Other)
  Sender: FDA-Public Use
  Company Number: PHEH2015US022368

PATIENT
  Age: 64 Year
  Sex: Female
  Weight: 71 kg

DRUGS (3)
  1. EXEMESTANE. [Concomitant]
     Active Substance: EXEMESTANE
     Indication: BREAST CANCER METASTATIC
     Dosage: 25 MG, QD
     Route: 048
     Dates: start: 20150613, end: 20151029
  2. AFINITOR [Suspect]
     Active Substance: EVEROLIMUS
     Dosage: 7.5 MG, QD
     Route: 048
     Dates: start: 20150713, end: 20151029
  3. AFINITOR [Suspect]
     Active Substance: EVEROLIMUS
     Indication: BREAST CANCER METASTATIC
     Dosage: 10 MG, QD
     Route: 048
     Dates: start: 20150613, end: 20150713

REACTIONS (9)
  - Breast cancer metastatic [Fatal]
  - Liver function test abnormal [Fatal]
  - Nausea [Fatal]
  - Fatigue [Fatal]
  - Abdominal pain [Fatal]
  - Hepatic failure [Fatal]
  - Ascites [Fatal]
  - Mental status changes [Unknown]
  - Jaundice [Fatal]

NARRATIVE: CASE EVENT DATE: 20150713
